FAERS Safety Report 6104031-5 (Version None)
Quarter: 2009Q1

REPORT INFORMATION
  Report Type: 
  Country: None (occurrence: None)
  Receive Date: 20090227
  Receipt Date: 20090224
  Transmission Date: 20090719
  Serious: Yes (Hospitalization)
  Sender: FDA-Public Use
  Company Number: 2009SP001226

PATIENT
  Age: 57 Year
  Sex: Male

DRUGS (2)
  1. NOXAFIL [Suspect]
     Indication: ASPERGILLOSIS
     Dosage: 600 MG;QD;PO
     Route: 048
     Dates: start: 20081118, end: 20081201
  2. PERINDOPRIL ERBUMINE [Concomitant]

REACTIONS (6)
  - COUGH [None]
  - GINGIVAL BLEEDING [None]
  - HAEMATURIA [None]
  - NEPHROTIC SYNDROME [None]
  - PYREXIA [None]
  - RENAL FAILURE [None]
